FAERS Safety Report 5634810-X (Version None)
Quarter: 2008Q1

REPORT INFORMATION
  Report Type: 
  Country: None (occurrence: None)
  Receive Date: 20080222
  Receipt Date: 20080215
  Transmission Date: 20080703
  Serious: Yes (Hospitalization, Disabling)
  Sender: FDA-Public Use
  Company Number: DE-ASTRAZENECA-2008PK00316

PATIENT
  Sex: Female

DRUGS (1)
  1. NAROPIN [Suspect]
     Route: 008

REACTIONS (3)
  - ENCEPHALOPATHY [None]
  - OVERDOSE [None]
  - PARAPLEGIA [None]
